FAERS Safety Report 7089926-0 (Version None)
Quarter: 2010Q4

REPORT INFORMATION
  Report Type: 
  Country: None (occurrence: None)
  Receive Date: 20101108
  Receipt Date: 20101025
  Transmission Date: 20110411
  Serious: Yes (Death, Other)
  Sender: FDA-Public Use
  Company Number: US-AMGEN-QUU402781

PATIENT

DRUGS (5)
  1. NPLATE [Suspect]
     Indication: IDIOPATHIC THROMBOCYTOPENIC PURPURA
     Dosage: 10 A?G/KG, UNK
     Dates: start: 20090430, end: 20091231
  2. NPLATE [Suspect]
     Dates: start: 20090429, end: 20091231
  3. CORTICOSTEROID NOS [Concomitant]
     Dosage: UNK UNK, UNK
     Dates: start: 20080722
  4. PREDNISONE [Concomitant]
     Dosage: 40 MG, UNK
     Dates: start: 20090407
  5. HYDROXYCARBAMIDE [Concomitant]
     Dosage: UNK UNK, UNK
     Dates: start: 20090922, end: 20091001

REACTIONS (6)
  - ACUTE MYELOMONOCYTIC LEUKAEMIA [None]
  - CHRONIC MYELOID LEUKAEMIA TRANSFORMATION [None]
  - CONFUSIONAL STATE [None]
  - DISEASE PROGRESSION [None]
  - THERAPEUTIC RESPONSE DECREASED [None]
  - THROMBOCYTOPENIA [None]
